FAERS Safety Report 9201640 (Version 1)
Quarter: 2013Q1

REPORT INFORMATION
  Report Type: Spontaneous
  Country: US (occurrence: None)
  Receive Date: 20130329
  Receipt Date: 20130329
  Transmission Date: 20140127
  Serious: Yes (Hospitalization)
  Sender: FDA-Public Use
  Company Number: None

PATIENT
  Age: 82 Year
  Sex: Male
  Weight: 91.3 kg

DRUGS (1)
  1. WARFARIN [Suspect]
     Indication: GRAFT THROMBOSIS
     Dosage: MG   PO
     Route: 048
     Dates: start: 20040421

REACTIONS (6)
  - International normalised ratio increased [None]
  - Upper gastrointestinal haemorrhage [None]
  - Asthenia [None]
  - Fatigue [None]
  - Haemoglobin decreased [None]
  - Haematocrit decreased [None]
